FAERS Safety Report 4767609-7 (Version None)
Quarter: 2005Q3

REPORT INFORMATION
  Report Type: 
  Country: None (occurrence: None)
  Receive Date: 20050912
  Receipt Date: 20050826
  Transmission Date: 20060218
  Serious: Yes (Hospitalization)
  Sender: FDA-Public Use
  Company Number: FABR-11221

PATIENT
  Age: 41 Year
  Sex: Female
  Weight: 97 kg

DRUGS (1)
  1. FABRAZYME [Suspect]
     Indication: FABRY'S DISEASE
     Dosage: 105 MG Q2WKS IV
     Route: 042
     Dates: start: 20031112

REACTIONS (6)
  - DIPLOPIA [None]
  - DIZZINESS [None]
  - EYE MOVEMENT DISORDER [None]
  - FATIGUE [None]
  - MALAISE [None]
  - VISION BLURRED [None]
